FAERS Safety Report 5383324-3 (Version None)
Quarter: 2007Q3

REPORT INFORMATION
  Report Type: 
  Country: None (occurrence: None)
  Receive Date: 20070710
  Receipt Date: 20070628
  Transmission Date: 20080115
  Serious: Yes (Other)
  Sender: FDA-Public Use
  Company Number: US-PFIZER INC-2007054303

PATIENT
  Age: 82 Year
  Sex: Male

DRUGS (1)
  1. RELPAX [Suspect]

REACTIONS (2)
  - AMNESIA [None]
  - DEMENTIA ALZHEIMER'S TYPE [None]
